FAERS Safety Report 7631067-5 (Version None)
Quarter: 2011Q3

REPORT INFORMATION
  Report Type: 
  Country: None (occurrence: None)
  Receive Date: 20110715
  Receipt Date: 20110705
  Transmission Date: 20111222
  Serious: Yes (Hospitalization)
  Sender: FDA-Public Use
  Company Number: 2011SP031176

PATIENT
  Age: 35 Year
  Sex: Female

DRUGS (4)
  1. PROCRIN (LEUPRORELIN ACETATE) [Suspect]
     Indication: IN VITRO FERTILISATION
     Dosage: 0.5 MG;QD;SC
     Route: 058
     Dates: start: 20110308
  2. PUREGON (FOLLITROPIN BETA /01348901/) [Suspect]
     Indication: IN VITRO FERTILISATION
     Dosage: 200IU;QD;SC
     Route: 058
     Dates: start: 20110331, end: 20110406
  3. GONAL-F [Suspect]
     Indication: IN VITRO FERTILISATION
     Dosage: 225 IU;QD;SC
     Route: 058
     Dates: start: 20110405, end: 20110410
  4. OVITRELLE (CHORIOGONADOTROPIN ALFA) [Suspect]
     Indication: IN VITRO FERTILISATION
     Dosage: 6400 IU;ONCE;SC
     Route: 058
     Dates: start: 20110410, end: 20110410

REACTIONS (8)
  - OEDEMA PERIPHERAL [None]
  - OVARIAN HYPERSTIMULATION SYNDROME [None]
  - ASCITES [None]
  - PLEURAL EFFUSION [None]
  - PREGNANCY [None]
  - MATERNAL EXPOSURE BEFORE PREGNANCY [None]
  - ABDOMINAL DISCOMFORT [None]
  - DRUG INTERACTION [None]
